APPROVED DRUG PRODUCT: MECLAN
Active Ingredient: MECLOCYCLINE SULFOSALICYLATE
Strength: 1%
Dosage Form/Route: CREAM;TOPICAL
Application: N050518 | Product #001
Applicant: JOHNSON AND JOHNSON CONSUMER COMPANIES INC
Approved: Approved Prior to Jan 1, 1982 | RLD: No | RS: No | Type: DISCN